FAERS Safety Report 9358976 (Version 1)
Quarter: 2013Q2

REPORT INFORMATION
  Report Type: Spontaneous
  Country: US (occurrence: US)
  Receive Date: 20130620
  Receipt Date: 20130620
  Transmission Date: 20140414
  Serious: Yes (Disabling, Other)
  Sender: FDA-Public Use
  Company Number: US-TEVA-412366USA

PATIENT
  Sex: Female

DRUGS (6)
  1. MEDROXYPROGESTERONE [Suspect]
     Indication: UTERINE DISORDER
  2. MEDROXYPROGESTERONE [Suspect]
     Indication: ADVERSE EVENT
  3. CYCRIN [Suspect]
     Indication: UTERINE DISORDER
  4. CYCRIN [Suspect]
     Indication: ADVERSE EVENT
  5. PROVERA [Suspect]
     Indication: UTERINE DISORDER
  6. PROVERA [Suspect]
     Indication: ADVERSE EVENT

REACTIONS (2)
  - Invasive lobular breast carcinoma [Unknown]
  - Staphylococcal infection [Unknown]
